FAERS Safety Report 20107345 (Version 1)
Quarter: 2021Q4

REPORT INFORMATION
  Report Type: Report from Study
  Country: MX (occurrence: MX)
  Receive Date: 20211124
  Receipt Date: 20211124
  Transmission Date: 20220303
  Serious: Yes (Other)
  Sender: FDA-Public Use
  Company Number: MX-NOVARTISPH-NVSC2021MX264734

PATIENT
  Age: 52 Year
  Sex: Female

DRUGS (5)
  1. SANDOSTATIN LAR DEPOT [Suspect]
     Active Substance: OCTREOTIDE ACETATE
     Indication: Neuroendocrine tumour
     Dosage: 1 DF (20MG), QMO
     Route: 030
     Dates: start: 201212
  2. SANDOSTATIN LAR DEPOT [Suspect]
     Active Substance: OCTREOTIDE ACETATE
  3. SANDOSTATIN LAR DEPOT [Suspect]
     Active Substance: OCTREOTIDE ACETATE
  4. AFINITOR [Suspect]
     Active Substance: EVEROLIMUS
     Indication: Neuroendocrine tumour
     Dosage: 1 DF, QD
     Route: 048
     Dates: start: 20210906, end: 20211104
  5. SANDOSTATIN [Suspect]
     Active Substance: OCTREOTIDE ACETATE
     Indication: Neuroendocrine tumour
     Dosage: UNK
     Route: 030
     Dates: start: 201211, end: 201211

REACTIONS (15)
  - Gallbladder disorder [Recovered/Resolved]
  - Blood triglycerides increased [Unknown]
  - Blood cholesterol increased [Unknown]
  - Blood creatinine abnormal [Unknown]
  - Back pain [Unknown]
  - Tremor [Unknown]
  - Vision blurred [Unknown]
  - Mouth ulceration [Unknown]
  - White blood cell count decreased [Unknown]
  - Pollakiuria [Unknown]
  - Faeces soft [Unknown]
  - Faeces discoloured [Unknown]
  - Fatigue [Unknown]
  - Diarrhoea [Unknown]
  - Blood glucose increased [Recovering/Resolving]

NARRATIVE: CASE EVENT DATE: 20121201
